FAERS Safety Report 12934165 (Version 2)
Quarter: 2016Q4

REPORT INFORMATION
  Report Type: Spontaneous
  Country: IT (occurrence: IT)
  Receive Date: 20161111
  Receipt Date: 20161122
  Transmission Date: 20170207
  Serious: Yes (Death, Other)
  Sender: FDA-Public Use
  Company Number: IT-MYLANLABS-2016M1048034

PATIENT

DRUGS (3)
  1. IDARUBICIN [Suspect]
     Active Substance: IDARUBICIN
     Indication: ACUTE PROMYELOCYTIC LEUKAEMIA
     Dosage: 70 MG, UNK
     Route: 041
  2. TRETINOIN. [Suspect]
     Active Substance: TRETINOIN
     Indication: ACUTE PROMYELOCYTIC LEUKAEMIA
     Dosage: UNK
  3. FUROSEMIDE. [Suspect]
     Active Substance: FUROSEMIDE
     Indication: ACUTE PROMYELOCYTIC LEUKAEMIA
     Dosage: UNK

REACTIONS (14)
  - Ventricular fibrillation [Fatal]
  - Brain natriuretic peptide increased [Unknown]
  - Overdose [Unknown]
  - Electrocardiogram ST segment elevation [Unknown]
  - Electrocardiogram T wave inversion [Unknown]
  - Medication error [Unknown]
  - Neutropenia [Unknown]
  - Sinus tachycardia [Unknown]
  - Mucosal inflammation [Unknown]
  - Troponin I increased [Unknown]
  - Dyspnoea [Unknown]
  - Ejection fraction decreased [Unknown]
  - Pulmonary oedema [Unknown]
  - Cardiogenic shock [Unknown]
